FAERS Safety Report 25955325 (Version 1)
Quarter: 2025Q4

REPORT INFORMATION
  Report Type: Report from Study
  Country: CA (occurrence: CA)
  Receive Date: 20251024
  Receipt Date: 20251024
  Transmission Date: 20260117
  Serious: Yes (Disabling)
  Sender: ABBVIE
  Company Number: CA-ABBVIE-6511456

PATIENT
  Age: 60 Year
  Sex: Female
  Weight: 46.2 kg

DRUGS (4)
  1. RINVOQ [Suspect]
     Active Substance: UPADACITINIB
     Indication: Crohn^s disease
     Route: 048
  2. STELARA [Concomitant]
     Active Substance: USTEKINUMAB
     Indication: Product used for unknown indication
  3. LOPERAMIDE [Concomitant]
     Active Substance: LOPERAMIDE
     Indication: Crohn^s disease
  4. PANTOPRAZOLE [Concomitant]
     Active Substance: PANTOPRAZOLE
     Indication: Crohn^s disease

REACTIONS (5)
  - Impaired work ability [Unknown]
  - Abdominal pain [Unknown]
  - Diarrhoea [Unknown]
  - Procedural pain [Unknown]
  - Social problem [Unknown]

NARRATIVE: CASE EVENT DATE: 20250101
